FAERS Safety Report 14242862 (Version 1)
Quarter: 2017Q4

REPORT INFORMATION
  Report Type: Spontaneous
  Country: US (occurrence: CH)
  Receive Date: 20171201
  Receipt Date: 20171201
  Transmission Date: 20180321
  Serious: Yes (Other)
  Sender: FDA-Public Use
  Company Number: US-SUNOVION-2017SUN005148

PATIENT
  Age: 82 Year
  Sex: Male

DRUGS (8)
  1. VITAMIN B12 [Concomitant]
     Active Substance: CYANOCOBALAMIN
  2. NOVALGIN [Concomitant]
     Active Substance: METAMIZOLE SODIUM
  3. FERROSANOL [Concomitant]
     Active Substance: FERROUS GLUCONATE
  4. METHOTREXAT PFIZER [Concomitant]
     Dosage: UNK
     Dates: start: 2011
  5. LANSOPRAZOL HELVEPHARM [Concomitant]
     Route: 065
  6. LEXOTANIL [Concomitant]
     Active Substance: BROMAZEPAM
  7. DUSPATALIN [Concomitant]
     Active Substance: MEBEVERINE HYDROCHLORIDE
  8. GLYCOPYRROLATE. [Suspect]
     Active Substance: GLYCOPYRROLATE
     Indication: PRODUCT USED FOR UNKNOWN INDICATION
     Dosage: 1 DF, QD
     Route: 055
     Dates: start: 20170920, end: 20170927

REACTIONS (2)
  - Pharyngeal disorder [Recovered/Resolved]
  - Drug intolerance [Recovered/Resolved]

NARRATIVE: CASE EVENT DATE: 20170920
